FAERS Safety Report 7437661-9 (Version None)
Quarter: 2011Q2

REPORT INFORMATION
  Report Type: 
  Country: None (occurrence: None)
  Receive Date: 20110426
  Receipt Date: 20110416
  Transmission Date: 20111010
  Serious: Yes (Death)
  Sender: FDA-Public Use
  Company Number: BR-ROCHE-691738

PATIENT
  Sex: Female
  Weight: 58 kg

DRUGS (2)
  1. LAPATINIB [Suspect]
     Indication: BREAST CANCER
     Dosage: 1.25 MG, QD
     Route: 048
     Dates: start: 20100129
  2. CAPECITABINE [Suspect]
     Indication: BREAST CANCER
     Dosage: 1.60 UNK, BID
     Route: 048
     Dates: start: 20100129

REACTIONS (1)
  - MULTI-ORGAN FAILURE [None]
